FAERS Safety Report 7335558-6 (Version None)
Quarter: 2011Q1

REPORT INFORMATION
  Report Type: 
  Country: None (occurrence: None)
  Receive Date: 20110307
  Receipt Date: 20110224
  Transmission Date: 20110831
  Serious: Yes (Life-Threatening, Other)
  Sender: FDA-Public Use
  Company Number: JP-PFIZER INC-2011047038

PATIENT
  Age: 74 Year
  Sex: Male

DRUGS (4)
  1. PLAVIX [Concomitant]
     Indication: ANGINA PECTORIS
     Dosage: UNK
     Route: 048
     Dates: start: 20110207
  2. TAKEPRON [Suspect]
     Dosage: UNK
     Route: 048
     Dates: start: 20110207, end: 20110219
  3. LIPITOR [Suspect]
     Dosage: 10 MG, 1X/DAY
     Route: 048
     Dates: start: 20110207, end: 20110219
  4. ASPIRIN [Concomitant]
     Indication: ANGINA PECTORIS
     Dosage: UNK
     Route: 048
     Dates: start: 20110207

REACTIONS (1)
  - DRUG ERUPTION [None]
